FAERS Safety Report 18654171 (Version 1)
Quarter: 2020Q4

REPORT INFORMATION
  Report Type: Other
  Country: CN (occurrence: CN)
  Receive Date: 20201223
  Receipt Date: 20201223
  Transmission Date: 20210114
  Serious: Yes (Hospitalization, Other)
  Sender: FDA-Public Use
  Company Number: CN-ASTELLAS-2020US044692

PATIENT
  Age: 12 Year
  Sex: Female
  Weight: 39 kg

DRUGS (5)
  1. D-CAL [Concomitant]
     Active Substance: CALCIUM CARBONATE
     Indication: MINERAL SUPPLEMENTATION
     Route: 048
     Dates: start: 20191014, end: 20201130
  2. PROGRAF [Suspect]
     Active Substance: TACROLIMUS
     Route: 048
     Dates: start: 20200304, end: 20201130
  3. PROGRAF [Suspect]
     Active Substance: TACROLIMUS
     Route: 048
  4. PROGRAF [Suspect]
     Active Substance: TACROLIMUS
     Indication: IGA NEPHROPATHY
     Dosage: UNK UNK, UNKNOWN FREQ.
     Route: 048
     Dates: start: 2014
  5. PREDNISONE. [Concomitant]
     Active Substance: PREDNISONE
     Indication: IGA NEPHROPATHY
     Dosage: UNK, UNKNOWN FREQ.
     Route: 065

REACTIONS (5)
  - Chondrocalcinosis pyrophosphate [Unknown]
  - Hypomagnesaemia [Unknown]
  - Joint injury [Unknown]
  - Gait inability [Unknown]
  - Product use in unapproved indication [Unknown]

NARRATIVE: CASE EVENT DATE: 20201125
